FAERS Safety Report 8831833 (Version 3)
Quarter: 2013Q4

REPORT INFORMATION
  Report Type: Report from Study
  Country: JP (occurrence: JP)
  Receive Date: 20121009
  Receipt Date: 20131023
  Transmission Date: 20140711
  Serious: Yes (Other)
  Sender: FDA-Public Use
  Company Number: PHHY2012JP087426

PATIENT
  Age: 38 Year
  Sex: Female

DRUGS (2)
  1. FTY 720 [Suspect]
     Indication: MULTIPLE SCLEROSIS
     Dosage: 0.5 MG, QD
     Route: 048
     Dates: start: 20120313, end: 20120418
  2. LANSOPRAZOLE [Concomitant]
     Dosage: 30 MG, UNK
     Route: 048
     Dates: start: 20120229, end: 20120531

REACTIONS (5)
  - Musculoskeletal pain [Recovering/Resolving]
  - Neck pain [Recovering/Resolving]
  - Headache [Recovering/Resolving]
  - Lymphocyte count decreased [Recovered/Resolved]
  - Back pain [Recovered/Resolved]
